FAERS Safety Report 24435402 (Version 2)
Quarter: 2024Q4

REPORT INFORMATION
  Report Type: Spontaneous
  Country: US (occurrence: US)
  Receive Date: 20241015
  Receipt Date: 20241206
  Transmission Date: 20250114
  Serious: Yes (Other)
  Sender: DAIICHI
  Company Number: US-DSJP-DS-2024-103339-US

PATIENT
  Sex: Female

DRUGS (1)
  1. VANFLYTA [Suspect]
     Active Substance: QUIZARTINIB DIHYDROCHLORIDE
     Indication: Product used for unknown indication
     Dosage: UNK
     Route: 065

REACTIONS (1)
  - Febrile neutropenia [Unknown]
